FAERS Safety Report 7989231-1 (Version None)
Quarter: 2011Q4

REPORT INFORMATION
  Report Type: 
  Country: None (occurrence: None)
  Receive Date: 20111216
  Receipt Date: 20111216
  Transmission Date: 20120403
  Serious: Yes (Other)
  Sender: FDA-Public Use
  Company Number: None

PATIENT
  Sex: Male
  Weight: 79.3795 kg

DRUGS (1)
  1. CIALIS [Suspect]
     Dosage: 1 PER DAY
     Dates: start: 20110223

REACTIONS (1)
  - DEAFNESS UNILATERAL [None]
